FAERS Safety Report 15694849 (Version 1)
Quarter: 2018Q4

REPORT INFORMATION
  Report Type: Spontaneous
  Country: US (occurrence: US)
  Receive Date: 20181206
  Receipt Date: 20181206
  Transmission Date: 20190205
  Serious: Yes (Hospitalization)
  Sender: FDA-Public Use
  Company Number: US-PFIZER INC-2018499658

PATIENT
  Age: 59 Year
  Sex: Male
  Weight: 66.67 kg

DRUGS (1)
  1. XANAX [Suspect]
     Active Substance: ALPRAZOLAM
     Dosage: UNK

REACTIONS (3)
  - Withdrawal syndrome [Unknown]
  - Intentional product use issue [Unknown]
  - Psychomotor hyperactivity [Unknown]
